FAERS Safety Report 8025729-8 (Version None)
Quarter: 2012Q1

REPORT INFORMATION
  Report Type: 
  Country: None (occurrence: None)
  Receive Date: 20120105
  Receipt Date: 20110107
  Transmission Date: 20120608
  Serious: No
  Sender: FDA-Public Use
  Company Number: US-ABBOTT-11P-163-0697050-00

PATIENT
  Sex: Female
  Weight: 63.56 kg

DRUGS (3)
  1. SYNTHROID [Suspect]
     Indication: AUTOIMMUNE THYROIDITIS
     Dosage: 150 MCG DAILY FROM MONDAY TO FRIDAY
     Route: 048
     Dates: start: 19860101
  2. CARTIA XT [Concomitant]
     Indication: HYPERTENSION
  3. SYNTHROID [Suspect]
     Indication: AUTOIMMUNE THYROIDITIS
     Dosage: 175 MCG ON SATURDAY AND SUNDAY
     Route: 048
     Dates: start: 19860101

REACTIONS (7)
  - PRURITUS [None]
  - COELIAC DISEASE [None]
  - DIABETES MELLITUS [None]
  - DERMATITIS ALLERGIC [None]
  - BLISTER [None]
  - BURNING SENSATION [None]
  - BLOOD GLUCOSE INCREASED [None]
